FAERS Safety Report 8090945-6 (Version None)
Quarter: 2012Q1

REPORT INFORMATION
  Report Type: 
  Country: None (occurrence: None)
  Receive Date: 20120128
  Receipt Date: 20110822
  Transmission Date: 20120608
  Serious: No
  Sender: FDA-Public Use
  Company Number: US-ABBOTT-11P-163-0842838-00

PATIENT
  Sex: Female
  Weight: 67.192 kg

DRUGS (8)
  1. HUMIRA [Suspect]
     Route: 058
     Dates: start: 20110723, end: 20110723
  2. HUMIRA [Suspect]
     Dates: start: 20110601
  3. AMBIEN [Concomitant]
     Indication: INSOMNIA
     Dosage: 1 IN 1 DAY, AS REQUIRED AT BEDTIME
     Route: 048
  4. ONDANSETRON HCL [Concomitant]
     Indication: VOMITING
  5. XANAX [Concomitant]
     Indication: ANXIETY
     Dosage: 1 IN 1 DAY, AS REQUIRED
     Route: 048
  6. RISPERDAL [Concomitant]
     Indication: ANXIETY
  7. PERCOCET [Concomitant]
     Indication: PAIN
  8. HUMIRA [Suspect]
     Indication: CROHN'S DISEASE
     Route: 058
     Dates: start: 20110708, end: 20110708

REACTIONS (5)
  - INJECTION SITE ERYTHEMA [None]
  - INJECTION SITE PAIN [None]
  - INJECTION SITE HAEMATOMA [None]
  - INJECTION SITE HAEMORRHAGE [None]
  - INJECTION SITE URTICARIA [None]
